FAERS Safety Report 5655796-8 (Version None)
Quarter: 2008Q1

REPORT INFORMATION
  Report Type: 
  Country: None (occurrence: None)
  Receive Date: 20080307
  Receipt Date: 20080226
  Transmission Date: 20080703
  Serious: Yes (Hospitalization)
  Sender: FDA-Public Use
  Company Number: IL-ABBOTT-08P-082-0438926-00

PATIENT
  Sex: Male
  Weight: 86 kg

DRUGS (5)
  1. HUMIRA [Suspect]
     Indication: CROHN'S DISEASE
     Route: 058
     Dates: start: 20080201
  2. HUMIRA [Suspect]
  3. HUMIRA [Suspect]
  4. PAROXETINE HCL [Concomitant]
     Indication: DEPRESSION
     Route: 048
  5. HYDROXYZINE HYDROCHLORIDE [Concomitant]
     Indication: PRURITUS
     Route: 048

REACTIONS (3)
  - ABSCESS [None]
  - ASTHENIA [None]
  - ILEAL PERFORATION [None]
